FAERS Safety Report 13386995 (Version 4)
Quarter: 2017Q2

REPORT INFORMATION
  Report Type: Report from Study
  Country: RO (occurrence: RO)
  Receive Date: 20170330
  Receipt Date: 20170504
  Transmission Date: 20170830
  Serious: Yes (Hospitalization, Disabling, Other)
  Sender: FDA-Public Use
  Company Number: RO-SEATTLE GENETICS-2017SGN00813

PATIENT
  Age: 66 Year
  Sex: Male
  Weight: 69 kg

DRUGS (5)
  1. BRENTUXIMAB VEDOTIN [Suspect]
     Active Substance: BRENTUXIMAB VEDOTIN
     Indication: ANAPLASTIC LARGE-CELL LYMPHOMA
     Dosage: 1.8 MG/KG, UNK
     Route: 042
     Dates: start: 20161228, end: 20170209
  2. METOPROLOL SUCCINATE. [Concomitant]
     Active Substance: METOPROLOL SUCCINATE
     Dosage: 47.5 MG, BID
     Route: 065
     Dates: start: 20150611
  3. NITROMINT [Concomitant]
     Dosage: 2.6 MG, BID
     Route: 065
     Dates: start: 20160607
  4. FUROSEMIDE W/SPIRONOLACTONE [Concomitant]
     Active Substance: FUROSEMIDE\SPIRONOLACTONE
     Dosage: UNK, QD
     Route: 065
     Dates: start: 20150707
  5. CLEXAN [Concomitant]
     Active Substance: ENOXAPARIN SODIUM
     Dosage: 0.6 ML, QD
     Route: 058
     Dates: start: 20161228

REACTIONS (1)
  - Pulmonary fibrosis [Not Recovered/Not Resolved]

NARRATIVE: CASE EVENT DATE: 20170322
